FAERS Safety Report 5497853-5 (Version None)
Quarter: 2007Q4

REPORT INFORMATION
  Report Type: 
  Country: None (occurrence: None)
  Receive Date: 20071025
  Receipt Date: 20070307
  Transmission Date: 20080405
  Serious: No
  Sender: FDA-Public Use
  Company Number: A0642520A

PATIENT
  Age: 52 Year
  Sex: Male

DRUGS (20)
  1. ADVAIR DISKUS 100/50 [Suspect]
     Indication: ASTHMA
     Route: 055
  2. RENTYLIN [Concomitant]
  3. GLIPIZIDE [Concomitant]
  4. CLEBOPRIDE [Concomitant]
  5. ACTOS [Concomitant]
  6. HYDROCODONE [Concomitant]
  7. BENAZEPRIL HYDROCHLORIDE [Concomitant]
  8. FENTANYL [Concomitant]
  9. VALIUM [Concomitant]
  10. PROZAC [Concomitant]
  11. CLONIDINE [Concomitant]
  12. HYDROCHLOROTHIAZIDE [Concomitant]
  13. ALBUTEROL [Concomitant]
  14. NEXIUM [Concomitant]
  15. ZYRTEC [Concomitant]
  16. COMPAZINE [Concomitant]
  17. SUCRALFATE [Concomitant]
  18. PIROXICAM [Concomitant]
  19. TESTOSTERONE [Concomitant]
  20. UNSPECIFIED NASAL SPRAY [Concomitant]

REACTIONS (1)
  - INSOMNIA [None]
